FAERS Safety Report 8997654 (Version 1)
Quarter: 2013Q1

REPORT INFORMATION
  Report Type: Spontaneous
  Country: EC (occurrence: EC)
  Receive Date: 20130104
  Receipt Date: 20130104
  Transmission Date: 20140127
  Serious: Yes (Hospitalization, Other)
  Sender: FDA-Public Use
  Company Number: PHHY2012EC122224

PATIENT
  Sex: Female

DRUGS (4)
  1. RASILEZ [Suspect]
     Indication: HYPERTENSION
     Dosage: 150 MG, QD
     Route: 048
     Dates: start: 2008
  2. DIOVAN HCT [Suspect]
     Indication: HYPERTENSION
     Dosage: 1 DF (160 MG VALS AND 12.5 MG HYDRO), QD
     Route: 048
     Dates: start: 1997
  3. SIMVASTATIN [Concomitant]
     Indication: HYPERLIPIDAEMIA
     Dosage: 20 MG, QD AS NEEDED
     Route: 048
  4. ANTIHYPERTENSIVE DRUGS [Concomitant]

REACTIONS (8)
  - Cerebrovascular accident [Recovered/Resolved]
  - Headache [Unknown]
  - Dizziness [Unknown]
  - Gait disturbance [Unknown]
  - Disorientation [Unknown]
  - Dysarthria [Unknown]
  - Cataract [Not Recovered/Not Resolved]
  - Cerebral infarction [Recovered/Resolved]
